FAERS Safety Report 22078184 (Version 5)
Quarter: 2023Q2

REPORT INFORMATION
  Report Type: Spontaneous
  Country: US (occurrence: US)
  Receive Date: 20230309
  Receipt Date: 20230518
  Transmission Date: 20230721
  Serious: Yes (Other)
  Sender: FDA-Public Use
  Company Number: US-PFIZER INC-202300097315

PATIENT
  Age: 50 Year
  Sex: Female

DRUGS (1)
  1. CALAN SR [Suspect]
     Active Substance: VERAPAMIL HYDROCHLORIDE
     Indication: Hypertension
     Dosage: 240 MG, DAILY
     Dates: start: 1989

REACTIONS (6)
  - Spinal cord operation [Unknown]
  - Atrial fibrillation [Unknown]
  - Renal transplant [Unknown]
  - Hypoaesthesia [Unknown]
  - Body height decreased [Unknown]
  - Carpal tunnel syndrome [Unknown]

NARRATIVE: CASE EVENT DATE: 19900101
